FAERS Safety Report 19594595 (Version 2)
Quarter: 2021Q3

REPORT INFORMATION
  Report Type: Other
  Country: JP (occurrence: JP)
  Receive Date: 20210722
  Receipt Date: 20210729
  Transmission Date: 20211014
  Serious: Yes (Hospitalization, Other)
  Sender: FDA-Public Use
  Company Number: JP-ROCHE-2874085

PATIENT
  Age: 67 Year
  Sex: Female

DRUGS (3)
  1. TACROLIMUS MONOHYDRATE [Concomitant]
     Active Substance: TACROLIMUS
     Indication: STILL^S DISEASE
     Route: 065
  2. ACTEMRA [Suspect]
     Active Substance: TOCILIZUMAB
     Indication: STILL^S DISEASE
     Route: 065
  3. PREDNISOLONE. [Concomitant]
     Active Substance: PREDNISOLONE
     Indication: STILL^S DISEASE
     Route: 065

REACTIONS (2)
  - COVID-19 pneumonia [Recovered/Resolved]
  - Meningitis bacterial [Unknown]

NARRATIVE: CASE EVENT DATE: 202011
